FAERS Safety Report 20391222 (Version 1)
Quarter: 2022Q1

REPORT INFORMATION
  Report Type: Spontaneous
  Country: US (occurrence: US)
  Receive Date: 20220128
  Receipt Date: 20220128
  Transmission Date: 20220423
  Serious: No
  Sender: FDA-Public Use
  Company Number: US-ALLERGAN-2132020US

PATIENT
  Age: 60 Year
  Sex: Female

DRUGS (4)
  1. FLUOROMETHOLONE [Suspect]
     Active Substance: FLUOROMETHOLONE
     Indication: Dry eye
     Dosage: UNK
  2. RESTASIS [Concomitant]
     Active Substance: CYCLOSPORINE
     Indication: Dry eye
     Dosage: UNK
  3. COMIRNATY [Concomitant]
     Active Substance: TOZINAMERAN
     Indication: COVID-19 immunisation
     Dosage: SECOND DOSE
     Dates: start: 20210825, end: 20210825
  4. COMIRNATY [Concomitant]
     Active Substance: TOZINAMERAN
     Dosage: FIRST DOSE
     Dates: start: 20210804, end: 20210804

REACTIONS (1)
  - Off label use [Unknown]
